FAERS Safety Report 8214134-7 (Version None)
Quarter: 2012Q1

REPORT INFORMATION
  Report Type: 
  Country: None (occurrence: None)
  Receive Date: 20120314
  Receipt Date: 20120314
  Transmission Date: 20120608
  Serious: Yes (Hospitalization)
  Sender: FDA-Public Use
  Company Number: None

PATIENT
  Age: 77 Year
  Sex: Female
  Weight: 58 kg

DRUGS (17)
  1. METHOTREXATE [Concomitant]
  2. EVOXAC [Concomitant]
  3. METAMUCIL-2 [Concomitant]
  4. LISINOPRIL [Concomitant]
  5. VESICARE [Concomitant]
  6. CRESTOR [Concomitant]
  7. VITAMIN D [Concomitant]
  8. PROTONIX [Concomitant]
  9. GABAPENTIN [Concomitant]
  10. MAG OX [Concomitant]
  11. COUMADIN [Suspect]
     Indication: ATRIAL FIBRILLATION
     Dosage: PO CHRONIC
     Route: 048
  12. CARVEDILOL [Concomitant]
  13. VERAMYST [Concomitant]
  14. XYZAL [Concomitant]
  15. SOTALOL HCL [Concomitant]
  16. DIGOXIN [Concomitant]
  17. KLONOPIN [Concomitant]

REACTIONS (11)
  - ATRIAL FIBRILLATION [None]
  - CONTUSION [None]
  - PERICARDIAL HAEMORRHAGE [None]
  - PLEURAL EFFUSION [None]
  - HEPATIC ENZYME INCREASED [None]
  - HYPONATRAEMIA [None]
  - ANAEMIA [None]
  - FALL [None]
  - DIZZINESS [None]
  - MALAISE [None]
  - INTERNATIONAL NORMALISED RATIO INCREASED [None]
